FAERS Safety Report 24823293 (Version 2)
Quarter: 2025Q3

REPORT INFORMATION
  Report Type: Spontaneous
  Country: US (occurrence: US)
  Receive Date: 20250109
  Receipt Date: 20250810
  Transmission Date: 20251020
  Serious: No
  Sender: ALEXION PHARMACEUTICALS
  Company Number: US-AstraZeneca-CH-00778294A

PATIENT

DRUGS (2)
  1. FASENRA [Suspect]
     Active Substance: BENRALIZUMAB
     Route: 065
  2. FENTANYL [Concomitant]
     Active Substance: FENTANYL
     Route: 065

REACTIONS (7)
  - Headache [Unknown]
  - Headache [Unknown]
  - Decreased appetite [Unknown]
  - Abdominal discomfort [Unknown]
  - Muscle spasms [Unknown]
  - Weight decreased [Unknown]
  - Neck pain [Unknown]
